FAERS Safety Report 10237955 (Version 1)
Quarter: 2014Q2

REPORT INFORMATION
  Report Type: Spontaneous
  Country: FR (occurrence: FR)
  Receive Date: 20140616
  Receipt Date: 20140616
  Transmission Date: 20141212
  Serious: Yes (Hospitalization)
  Sender: FDA-Public Use
  Company Number: FR-JNJFOC-20140603239

PATIENT
  Age: 70 Year
  Sex: Male

DRUGS (3)
  1. DOXORUBICIN HYDROCHLORIDE (CAELYX) [Suspect]
     Indication: MYCOSIS FUNGOIDES
     Route: 042
     Dates: start: 20140319
  2. DOXORUBICIN HYDROCHLORIDE (CAELYX) [Suspect]
     Indication: MYCOSIS FUNGOIDES
     Route: 042
     Dates: start: 20140414
  3. DOXORUBICIN HYDROCHLORIDE (CAELYX) [Suspect]
     Indication: MYCOSIS FUNGOIDES
     Dosage: 64MG, ONCE A MONTH),
     Route: 042
     Dates: start: 20140219, end: 20140319

REACTIONS (2)
  - Atrial fibrillation [Recovered/Resolved]
  - Off label use [Unknown]
